FAERS Safety Report 11881204 (Version 1)
Quarter: 2015Q4

REPORT INFORMATION
  Report Type: Spontaneous
  Country: FR (occurrence: FR)
  Receive Date: 20151231
  Receipt Date: 20151231
  Transmission Date: 20160305
  Serious: Yes (Hospitalization, Other)
  Sender: FDA-Public Use
  Company Number: FR-BRISTOL-MYERS SQUIBB COMPANY-10598571

PATIENT
  Age: 0 Year
  Sex: Male
  Weight: 3.72 kg

DRUGS (7)
  1. RETROVIR [Concomitant]
     Active Substance: ZIDOVUDINE
     Indication: HIV INFECTION
     Dosage: UNK
     Route: 048
  2. EPIVIR [Suspect]
     Active Substance: LAMIVUDINE
     Indication: PRODUCT USED FOR UNKNOWN INDICATION
     Dosage: UNK
     Route: 064
  3. METHADONE [Concomitant]
     Active Substance: METHADONE HYDROCHLORIDE
     Indication: PRODUCT USED FOR UNKNOWN INDICATION
     Dosage: UNK
     Route: 064
  4. BACTRIM [Concomitant]
     Active Substance: SULFAMETHOXAZOLE\TRIMETHOPRIM
     Indication: PRODUCT USED FOR UNKNOWN INDICATION
     Dosage: UNK
     Route: 064
  5. ZERIT [Suspect]
     Active Substance: STAVUDINE
     Indication: PRODUCT USED FOR UNKNOWN INDICATION
     Dosage: UNK
     Route: 064
  6. VIRAMUNE [Suspect]
     Active Substance: NEVIRAPINE
     Indication: HIV INFECTION
     Dosage: UNK
     Route: 048
     Dates: start: 19991009, end: 19991009
  7. VIRACEPT [Suspect]
     Active Substance: NELFINAVIR MESYLATE
     Indication: PRODUCT USED FOR UNKNOWN INDICATION
     Dosage: UNK
     Route: 064

REACTIONS (8)
  - Hyperkalaemia [Recovered/Resolved]
  - Neutropenia [Recovered/Resolved]
  - Blood lactic acid increased [Recovered/Resolved]
  - Macrocytosis [Recovered/Resolved]
  - Psychomotor skills impaired [Not Recovered/Not Resolved]
  - Hypertriglyceridaemia [Recovered/Resolved]
  - Foetal exposure during pregnancy [Unknown]
  - Blood creatine phosphokinase increased [Not Recovered/Not Resolved]

NARRATIVE: CASE EVENT DATE: 199910
